FAERS Safety Report 4581273-1 (Version None)
Quarter: 2005Q1

REPORT INFORMATION
  Report Type: 
  Country: None (occurrence: None)
  Receive Date: 20050127
  Receipt Date: 20040820
  Transmission Date: 20050727
  Serious: No
  Sender: FDA-Public Use
  Company Number: USA040876155

PATIENT
  Age: 5 Year
  Sex: Female
  Weight: 19 kg

DRUGS (1)
  1. STRATTERA [Suspect]
     Indication: ATTENTION DEFICIT/HYPERACTIVITY DISORDER
     Dosage: 25 MG DAY
     Dates: start: 20040813

REACTIONS (3)
  - ABNORMAL BEHAVIOUR [None]
  - ATTENTION DEFICIT/HYPERACTIVITY DISORDER [None]
  - DISTURBANCE IN ATTENTION [None]
